FAERS Safety Report 7802846-6 (Version None)
Quarter: 2011Q4

REPORT INFORMATION
  Report Type: 
  Country: None (occurrence: None)
  Receive Date: 20111007
  Receipt Date: 20110929
  Transmission Date: 20120403
  Serious: Yes (Other)
  Sender: FDA-Public Use
  Company Number: FR-VERTEX PHARMACEUTICALS INC.-AE-2011-002059

PATIENT
  Sex: Female
  Weight: 56 kg

DRUGS (5)
  1. PEGASYS [Concomitant]
     Indication: HEPATITIS C
     Route: 058
     Dates: start: 20110907
  2. XYZAL [Concomitant]
     Indication: ANTIALLERGIC THERAPY
  3. ACETAMINOPHEN [Concomitant]
     Indication: PAIN
  4. COPEGUS [Concomitant]
     Indication: HEPATITIS C
     Dates: start: 20110907
  5. VX-950 [Suspect]
     Indication: HEPATITIS C
     Route: 048
     Dates: start: 20110907

REACTIONS (3)
  - DRY SKIN [None]
  - ASTHENIA [None]
  - THROMBOCYTOPENIA [None]
